FAERS Safety Report 8897675 (Version 1)
Quarter: 2012Q4

REPORT INFORMATION
  Report Type: 
  Country: US (occurrence: US)
  Receive Date: 20121108
  Receipt Date: 20121108
  Transmission Date: 20130627
  Serious: No
  Sender: FDA-Public Use
  Company Number: US-AMGEN-USASP2012038552

PATIENT
  Age: 61 Year
  Sex: Female

DRUGS (14)
  1. ENBREL [Suspect]
     Indication: RHEUMATOID ARTHRITIS
     Dosage: 50 mg, qwk
     Dates: start: 201206
  2. VITAMIN C                          /00008001/ [Concomitant]
     Dosage: 1 g, UNK
  3. FISH OIL [Concomitant]
     Dosage: 1 g, UNK
  4. CYMBALTA [Concomitant]
     Dosage: 1 mg, UNK
  5. FLAXSEED OIL [Concomitant]
     Dosage: 1 mg, UNK
  6. WELLBUTRIN [Concomitant]
     Dosage: 1 mg, UNK
  7. FOLIC ACID [Concomitant]
     Dosage: 1 mg, UNK
  8. METHOTREXATE [Concomitant]
     Dosage: 7 mg, UNK
  9. VIVELLE DOT [Concomitant]
     Dosage: 2 mg, UNK
  10. VAGIFEM [Concomitant]
  11. VITAMIN E                          /00110501/ [Concomitant]
     Dosage: 400 IU, UNK
  12. VITAMIN D /00107901/ [Concomitant]
     Dosage: 2000 IU, UNK
  13. AZOR                               /00595201/ [Concomitant]
     Dosage: UNK
  14. CALCIUM VIT D [Concomitant]
     Dosage: UNK

REACTIONS (1)
  - Cough [Not Recovered/Not Resolved]
